FAERS Safety Report 11632689 (Version 2)
Quarter: 2015Q4

REPORT INFORMATION
  Report Type: Spontaneous
  Country: US (occurrence: US)
  Receive Date: 20151015
  Receipt Date: 20151201
  Transmission Date: 20160304
  Serious: Yes (Life-Threatening, Hospitalization, Disabling)
  Sender: FDA-Public Use
  Company Number: US-BAYER-2015-444068

PATIENT
  Age: 26 Year
  Sex: Female
  Weight: 87.53 kg

DRUGS (3)
  1. DOCUSATE SODIUM. [Concomitant]
     Active Substance: DOCUSATE SODIUM
     Indication: CONSTIPATION
     Dosage: 100 MG, 1 CAPSULE BID
     Route: 048
  2. IBUPROFEN. [Concomitant]
     Active Substance: IBUPROFEN
     Indication: PAIN
     Dosage: 600 MG, 1 TAB Q. 6 HOURS PRN
     Route: 048
  3. MIRENA [Suspect]
     Active Substance: LEVONORGESTREL
     Indication: CONTRACEPTION
     Dosage: 20 MCG/24HR, CONT
     Route: 015
     Dates: start: 20120926, end: 20130424

REACTIONS (8)
  - Vaginal haemorrhage [None]
  - Injury [None]
  - General physical health deterioration [None]
  - Balance disorder [None]
  - Device difficult to use [None]
  - Uterine perforation [None]
  - Pelvic pain [None]
  - Fallopian tube disorder [None]

NARRATIVE: CASE EVENT DATE: 20130228
